FAERS Safety Report 6558576-4 (Version None)
Quarter: 2010Q1

REPORT INFORMATION
  Report Type: 
  Country: None (occurrence: None)
  Receive Date: 20100129
  Receipt Date: 20091118
  Transmission Date: 20100710
  Serious: No
  Sender: FDA-Public Use
  Company Number: A0825103A

PATIENT
  Sex: Female

DRUGS (1)
  1. MEPRON [Suspect]

REACTIONS (1)
  - HYPOSMIA [None]
